FAERS Safety Report 10243465 (Version 3)
Quarter: 2014Q4

REPORT INFORMATION
  Report Type: Spontaneous
  Country: US (occurrence: US)
  Receive Date: 20140618
  Receipt Date: 20141010
  Transmission Date: 20150528
  Serious: Yes (Hospitalization, Other)
  Sender: FDA-Public Use
  Company Number: US-BAYER-2014-090554

PATIENT
  Age: 47 Year
  Sex: Female
  Weight: 80.27 kg

DRUGS (5)
  1. MIRENA [Suspect]
     Active Substance: LEVONORGESTREL
     Indication: CONTRACEPTION
     Dosage: 20 MCG/24HR, CONT
     Route: 015
     Dates: start: 20120530, end: 20130430
  2. PERCOCET [OXYCODONE HYDROCHLORIDE,OXYCODONE TEREPHTHALATE,PARACETA [Concomitant]
  3. DEPAKOTE [Concomitant]
     Active Substance: DIVALPROEX SODIUM
     Indication: SEIZURE
     Dosage: UNK
     Dates: start: 2006
  4. DIAZEPAM. [Concomitant]
     Active Substance: DIAZEPAM
  5. MIRENA [Suspect]
     Active Substance: LEVONORGESTREL
     Indication: CONTRACEPTION
     Dosage: 20 MCG/24HR, CONT
     Dates: start: 20091204, end: 20120312

REACTIONS (12)
  - Complication of device removal [None]
  - Device difficult to use [None]
  - Device dislocation [None]
  - Injury [None]
  - Emotional distress [None]
  - Embedded device [None]
  - Device breakage [None]
  - Genital haemorrhage [None]
  - Medical device discomfort [None]
  - Procedural pain [None]
  - Pain [None]
  - Abdominal pain lower [None]

NARRATIVE: CASE EVENT DATE: 201302
